FAERS Safety Report 7301195-2 (Version None)
Quarter: 2011Q1

REPORT INFORMATION
  Report Type: 
  Country: None (occurrence: None)
  Receive Date: 20110218
  Receipt Date: 20110207
  Transmission Date: 20110831
  Serious: Yes (Hospitalization, Other)
  Sender: FDA-Public Use
  Company Number: US-PURDUE-USA-2010-0060867

PATIENT
  Sex: Female

DRUGS (4)
  1. OXYCONTIN [Suspect]
     Indication: MUSCLE DISORDER
     Dosage: 20 MG, BID
     Route: 048
     Dates: start: 20101201
  2. OXYCONTIN [Suspect]
     Indication: NERVOUS SYSTEM DISORDER
     Dosage: 80 MG, BID
     Route: 048
     Dates: start: 20101201
  3. COUMADIN [Suspect]
     Indication: COMPLEX REGIONAL PAIN SYNDROME
     Dosage: UNK
     Route: 048
  4. COUMADIN [Suspect]
     Indication: DEEP VEIN THROMBOSIS

REACTIONS (16)
  - FALL [None]
  - VARICOSE VEIN [None]
  - PRODUCT SIZE ISSUE [None]
  - INTERNATIONAL NORMALISED RATIO ABNORMAL [None]
  - HEADACHE [None]
  - LIMB INJURY [None]
  - HAEMORRHAGIC DIATHESIS [None]
  - ALOPECIA [None]
  - DRUG WITHDRAWAL SYNDROME [None]
  - VENOUS HAEMORRHAGE [None]
  - GENERAL PHYSICAL HEALTH DETERIORATION [None]
  - DRUG INEFFECTIVE [None]
  - CHILLS [None]
  - NAUSEA [None]
  - DRUG INTERACTION [None]
  - DIZZINESS [None]
